FAERS Safety Report 8024907-1 (Version None)
Quarter: 2012Q1

REPORT INFORMATION
  Report Type: 
  Country: None (occurrence: None)
  Receive Date: 20120105
  Receipt Date: 20111227
  Transmission Date: 20120608
  Serious: Yes (Hospitalization)
  Sender: FDA-Public Use
  Company Number: US-AMGEN-USASP2011069011

PATIENT
  Age: 51 Year
  Sex: Female

DRUGS (12)
  1. PROLIA [Suspect]
     Indication: OSTEOPENIA
     Dosage: 60 MG, UNK
     Dates: start: 20101201
  2. PROGRAF [Concomitant]
  3. XANAX [Concomitant]
  4. NOVOLOG [Concomitant]
     Route: 058
  5. VITAMIN D2 [Concomitant]
  6. ROBAXIN [Concomitant]
  7. CELLCEPT [Concomitant]
  8. BACTRIM [Concomitant]
  9. PREDNISONE TAB [Concomitant]
  10. VALCYTE [Concomitant]
  11. SULFONAMIDE [Concomitant]
  12. GABAPENTIN [Concomitant]

REACTIONS (2)
  - DEHYDRATION [None]
  - PANCREAS TRANSPLANT REJECTION [None]
